FAERS Safety Report 14620183 (Version 2)
Quarter: 2018Q1

REPORT INFORMATION
  Report Type: Spontaneous
  Country: CH (occurrence: CH)
  Receive Date: 20180309
  Receipt Date: 20180316
  Transmission Date: 20180509
  Serious: Yes (Death, Other)
  Sender: FDA-Public Use
  Company Number: CH-009507513-1801CHE004282

PATIENT
  Age: 61 Year
  Sex: Male

DRUGS (1)
  1. KEYTRUDA [Suspect]
     Active Substance: PEMBROLIZUMAB
     Indication: LUNG NEOPLASM MALIGNANT
     Dosage: 200 MG, Q3W (ONLY ONE DOSE)
     Dates: start: 20171229, end: 20171229

REACTIONS (12)
  - Adverse event [Unknown]
  - Viral infection [Fatal]
  - Aspiration bronchial [Unknown]
  - Death [Fatal]
  - Mycoplasma infection [Fatal]
  - Candida infection [Unknown]
  - Acute respiratory distress syndrome [Unknown]
  - Myocarditis [Unknown]
  - Inflammation [Unknown]
  - Pneumonia [Unknown]
  - Lung disorder [Fatal]
  - Cardio-respiratory arrest [Unknown]

NARRATIVE: CASE EVENT DATE: 20180102
